FAERS Safety Report 17679536 (Version 1)
Quarter: 2020Q2

REPORT INFORMATION
  Report Type: Spontaneous
  Country: US (occurrence: US)
  Receive Date: 20200417
  Receipt Date: 20200417
  Transmission Date: 20200714
  Serious: Yes (Hospitalization, Other)
  Sender: FDA-Public Use
  Company Number: US-ACCORD-179051

PATIENT
  Age: 54 Year
  Sex: Female

DRUGS (1)
  1. CLOZAPINE. [Suspect]
     Active Substance: CLOZAPINE
     Indication: SCHIZOPHRENIA
     Dosage: SLOWLY UPTITRATED

REACTIONS (3)
  - Cardiac failure acute [Recovering/Resolving]
  - Ventricular hypokinesia [Recovered/Resolved]
  - Myocarditis [Recovering/Resolving]
